FAERS Safety Report 21452309 (Version 3)
Quarter: 2023Q2

REPORT INFORMATION
  Report Type: Report from Study
  Country: ES (occurrence: ES)
  Receive Date: 20221013
  Receipt Date: 20230425
  Transmission Date: 20230721
  Serious: Yes (Death, Life-Threatening, Hospitalization)
  Sender: FDA-Public Use
  Company Number: ES-NOVARTISPH-NVSC2022ES224060

PATIENT
  Age: 74 Year
  Sex: Male
  Weight: 62 kg

DRUGS (17)
  1. TISLELIZUMAB [Suspect]
     Active Substance: TISLELIZUMAB
     Indication: Non-small cell lung cancer metastatic
     Dosage: 200 MG
     Route: 042
     Dates: start: 20220830
  2. TISLELIZUMAB [Suspect]
     Active Substance: TISLELIZUMAB
     Dosage: 200 MG
     Route: 042
     Dates: start: 20220920, end: 20220920
  3. CARBOPLATIN [Suspect]
     Active Substance: CARBOPLATIN
     Indication: Non-small cell lung cancer metastatic
     Dosage: 445.5 MG
     Route: 042
     Dates: start: 20220830
  4. CARBOPLATIN [Suspect]
     Active Substance: CARBOPLATIN
     Dosage: 445.5 MG
     Route: 042
     Dates: start: 20220920, end: 20220920
  5. PEMETREXED [Suspect]
     Active Substance: PEMETREXED
     Indication: Non-small cell lung cancer metastatic
     Dosage: 840 MG
     Route: 042
     Dates: start: 20220830
  6. PEMETREXED [Suspect]
     Active Substance: PEMETREXED
     Dosage: 840 MG
     Route: 042
     Dates: start: 20220920, end: 20220920
  7. PLACEBO [Suspect]
     Active Substance: UNSPECIFIED INGREDIENT
     Indication: Non-small cell lung cancer metastatic
     Dosage: 900 MG
     Route: 042
     Dates: start: 20220830
  8. PLACEBO [Suspect]
     Active Substance: UNSPECIFIED INGREDIENT
     Dosage: 900 MG
     Route: 042
     Dates: start: 20220920, end: 20220920
  9. BISOPROLOL FUMARATE [Concomitant]
     Active Substance: BISOPROLOL FUMARATE
     Indication: Atrial flutter
     Dosage: UNK
     Route: 065
     Dates: start: 20190718
  10. BISOPROLOL FUMARATE [Concomitant]
     Active Substance: BISOPROLOL FUMARATE
     Indication: Depression
  11. VORTIOXETINE [Concomitant]
     Active Substance: VORTIOXETINE
     Indication: Depression
     Dosage: UNK
     Route: 065
     Dates: start: 202205
  12. ENOXAPARIN SODIUM [Concomitant]
     Active Substance: ENOXAPARIN SODIUM
     Indication: Atrial flutter
     Dosage: UNK
     Route: 065
     Dates: start: 20220817
  13. FOLIC ACID [Concomitant]
     Active Substance: FOLIC ACID
     Indication: Prophylaxis
     Dosage: UNK
     Route: 065
     Dates: start: 20220820
  14. PRIMPERAN [Concomitant]
     Active Substance: METOCLOPRAMIDE HYDROCHLORIDE
     Indication: Antiemetic supportive care
     Dosage: UNK
     Route: 065
     Dates: start: 20220830
  15. VITAMINS [Concomitant]
     Active Substance: VITAMINS
     Indication: Decreased appetite
     Dosage: UNK
     Route: 065
     Dates: start: 20220908
  16. YATROX [Concomitant]
     Indication: Antiemetic supportive care
     Dosage: UNK
     Route: 065
     Dates: start: 20220910
  17. GLYCERIN [Concomitant]
     Active Substance: GLYCERIN
     Indication: Constipation
     Dosage: UNK, PRN
     Route: 065
     Dates: start: 20220913

REACTIONS (2)
  - Neutropenia [Fatal]
  - Nausea [Not Recovered/Not Resolved]

NARRATIVE: CASE EVENT DATE: 20220926
